FAERS Safety Report 7641519-X (Version None)
Quarter: 2011Q3

REPORT INFORMATION
  Report Type: 
  Country: None (occurrence: None)
  Receive Date: 20110727
  Receipt Date: 20110727
  Transmission Date: 20111222
  Serious: Yes (Hospitalization)
  Sender: FDA-Public Use
  Company Number: None

PATIENT
  Sex: Female
  Weight: 66.7 kg

DRUGS (3)
  1. RITUXIMAB [Suspect]
     Indication: DIFFUSE LARGE B-CELL LYMPHOMA
     Dosage: 638MG IV
     Route: 042
     Dates: start: 20110708
  2. BENDAMUSTINE [Suspect]
     Indication: DIFFUSE LARGE B-CELL LYMPHOMA
     Dosage: 204MG IV
     Route: 042
     Dates: start: 20110708
  3. BENDAMUSTINE [Suspect]
     Indication: DIFFUSE LARGE B-CELL LYMPHOMA
     Dosage: 204MG IV
     Route: 042
     Dates: start: 20110709

REACTIONS (2)
  - URINE LEUKOCYTE ESTERASE POSITIVE [None]
  - BODY TEMPERATURE INCREASED [None]
